FAERS Safety Report 15766414 (Version 1)
Quarter: 2018Q4

REPORT INFORMATION
  Report Type: Spontaneous
  Country: GB (occurrence: GB)
  Receive Date: 20181227
  Receipt Date: 20181227
  Transmission Date: 20190205
  Serious: Yes (Life-Threatening, Disabling)
  Sender: FDA-Public Use
  Company Number: GB-TERSERA THERAPEUTICS LLC-TSR2018002793

PATIENT

DRUGS (1)
  1. ZOLADEX [Suspect]
     Active Substance: GOSERELIN ACETATE
     Indication: MENORRHAGIA
     Dosage: 3.8MG UNKNOWN
     Route: 058
     Dates: start: 201711, end: 201801

REACTIONS (7)
  - Hypertension [Recovered/Resolved with Sequelae]
  - Antiphospholipid syndrome [Unknown]
  - Haemorrhage [Unknown]
  - Malaise [Unknown]
  - Cerebrovascular accident [Recovered/Resolved with Sequelae]
  - Carotid artery occlusion [Unknown]
  - Thrombosis [Unknown]

NARRATIVE: CASE EVENT DATE: 201711
